FAERS Safety Report 6163255-1 (Version None)
Quarter: 2009Q2

REPORT INFORMATION
  Report Type: 
  Country: None (occurrence: None)
  Receive Date: 20090420
  Receipt Date: 20090420
  Transmission Date: 20091009
  Serious: Yes (Hospitalization)
  Sender: FDA-Public Use
  Company Number: None

PATIENT
  Age: 62 Year
  Sex: Male
  Weight: 96.7 kg

DRUGS (1)
  1. DIATRIZOATE [Suspect]
     Dosage: 10 GM ONCE
     Dates: start: 20090113, end: 20090113

REACTIONS (3)
  - CHEST PAIN [None]
  - PRURITUS [None]
  - URTICARIA [None]
